FAERS Safety Report 18932313 (Version 2)
Quarter: 2021Q1

REPORT INFORMATION
  Report Type: Spontaneous
  Country: US (occurrence: US)
  Receive Date: 20210224
  Receipt Date: 20210329
  Transmission Date: 20210420
  Serious: Yes (Death, Hospitalization, Other)
  Sender: FDA-Public Use
  Company Number: US-009507513-2102USA006669

PATIENT
  Age: 77 Year
  Sex: Female

DRUGS (8)
  1. CARBOPLATIN. [Suspect]
     Active Substance: CARBOPLATIN
     Dosage: UNK
     Dates: end: 20210209
  2. PEMETREXED DISODIUM [Suspect]
     Active Substance: PEMETREXED DISODIUM
     Dosage: 664 MILLIGRAM, Q3W
     Dates: start: 20200901, end: 20210209
  3. ARMOUR THYROID [Concomitant]
     Active Substance: THYROID, PORCINE
     Dosage: 60 MILLIGRAM, DAILY
     Route: 048
  4. PEMETREXED DISODIUM [Suspect]
     Active Substance: PEMETREXED DISODIUM
     Indication: LUNG NEOPLASM MALIGNANT
     Dosage: 830 MILLIGRAM, Q3W
     Dates: start: 20200609, end: 20200811
  5. KEYTRUDA [Suspect]
     Active Substance: PEMBROLIZUMAB
     Indication: LUNG NEOPLASM MALIGNANT
     Dosage: 119.8 MILLIGRAM, Q3W
     Dates: start: 20200609, end: 20200811
  6. PFIZER?BIONTECH COVID?19 VACCINE [Interacting]
     Active Substance: TOZINAMERAN
     Indication: PROPHYLAXIS
     Dosage: 1 DOSAGE FORM
     Dates: start: 20200206
  7. KEYTRUDA [Interacting]
     Active Substance: PEMBROLIZUMAB
     Dosage: 119.8 MILLIGRAM, Q3W
     Dates: start: 20200901, end: 20210209
  8. CARBOPLATIN. [Suspect]
     Active Substance: CARBOPLATIN
     Indication: LUNG NEOPLASM MALIGNANT
     Dosage: 302 MILLIGRAM, Q3W
     Dates: start: 20200609, end: 20200811

REACTIONS (19)
  - Incorrect dose administered [Unknown]
  - Death [Fatal]
  - Pancreatic duct stenosis [Unknown]
  - Biliary dilatation [Unknown]
  - Nausea [Recovered/Resolved]
  - Abdominal mass [Unknown]
  - Myocardial infarction [Unknown]
  - Dyspnoea [Recovered/Resolved]
  - Oxygen saturation abnormal [Recovered/Resolved]
  - Anuria [Unknown]
  - Tachycardia [Unknown]
  - Liver function test increased [Unknown]
  - Drug interaction [Unknown]
  - Abdominal discomfort [Recovered/Resolved]
  - Constipation [Unknown]
  - Cough [Unknown]
  - Abdominal distension [Recovered/Resolved]
  - Weight increased [Not Recovered/Not Resolved]
  - Lymphadenopathy [Unknown]

NARRATIVE: CASE EVENT DATE: 2020
